FAERS Safety Report 6692605-2 (Version None)
Quarter: 2010Q2

REPORT INFORMATION
  Report Type: 
  Country: None (occurrence: None)
  Receive Date: 20100422
  Receipt Date: 20100412
  Transmission Date: 20101027
  Serious: Yes (Hospitalization, Other)
  Sender: FDA-Public Use
  Company Number: US-PFIZER INC-2010046638

PATIENT
  Sex: Female
  Weight: 62.132 kg

DRUGS (10)
  1. CHANTIX [Suspect]
     Indication: SMOKING CESSATION THERAPY
     Dosage: 0.5 MG, 1X/DAY
     Route: 048
     Dates: start: 20100127
  2. CHANTIX [Suspect]
     Dosage: 1 MG, 2X/DAY
     Route: 048
     Dates: start: 20100201
  3. LIPITOR [Concomitant]
     Indication: BLOOD CHOLESTEROL INCREASED
     Dosage: UNK
  4. VENLAFAXINE [Concomitant]
     Indication: MIGRAINE
     Dosage: 37.5 MG, 2X/DAY
  5. VENLAFAXINE [Concomitant]
     Indication: DEPRESSION
  6. NORTRIPTYLINE [Concomitant]
     Indication: MIGRAINE
     Dosage: 25 MG, 2X/DAY
  7. ALPRAZOLAM [Concomitant]
     Indication: ANXIETY
     Dosage: UNK
  8. BUMETANIDE [Concomitant]
     Indication: OEDEMA
     Dosage: 0.5 MG, 2X/DAY
  9. OMEPRAZOLE [Concomitant]
     Dosage: 20 MG, 2X/DAY
  10. ALENDRONATE SODIUM [Concomitant]
     Indication: BONE DISORDER
     Dosage: 35 MG, UNK

REACTIONS (4)
  - CHILLS [None]
  - LARGE INTESTINAL ULCER [None]
  - MIGRAINE [None]
  - PAIN [None]
